FAERS Safety Report 20924393 (Version 1)
Quarter: 2022Q2

REPORT INFORMATION
  Report Type: Spontaneous
  Country: US (occurrence: None)
  Receive Date: 20220606
  Receipt Date: 20220606
  Transmission Date: 20220720
  Serious: Yes (Other)
  Sender: FDA-Public Use
  Company Number: None

PATIENT
  Age: 60 Year
  Sex: Male
  Weight: 78.75 kg

DRUGS (6)
  1. VILAZODONE HYDROCHLORIDE [Suspect]
     Active Substance: VILAZODONE HYDROCHLORIDE
     Indication: Bipolar disorder
     Dosage: FREQUENCY : DAILY;?
     Route: 048
     Dates: start: 20220511, end: 20220605
  2. LITHIUM [Concomitant]
     Active Substance: LITHIUM
  3. LISINOPRIL [Concomitant]
     Active Substance: LISINOPRIL
  4. RISPERIDONE [Concomitant]
     Active Substance: RISPERIDONE
  5. FLUOXETINE [Concomitant]
     Active Substance: FLUOXETINE HYDROCHLORIDE
  6. VITAMIN D [Concomitant]
     Active Substance: VITAMIN D NOS

REACTIONS (7)
  - Grandiosity [None]
  - Insomnia [None]
  - Agitation [None]
  - Suicidal ideation [None]
  - Homicidal ideation [None]
  - Hostility [None]
  - Abnormal behaviour [None]

NARRATIVE: CASE EVENT DATE: 20220603
